FAERS Safety Report 11771765 (Version 1)
Quarter: 2015Q4

REPORT INFORMATION
  Report Type: Spontaneous
  Country: IE (occurrence: None)
  Receive Date: 20151123
  Receipt Date: 20151123
  Transmission Date: 20160304
  Serious: Yes (Hospitalization, Disabling)
  Sender: FDA-Public Use
  Company Number: None

PATIENT
  Age: 73 Year
  Sex: Male
  Weight: 90.72 kg

DRUGS (4)
  1. COENZYME Q10 [Concomitant]
     Active Substance: UBIDECARENONE
  2. OMEGA 3 EPA [Concomitant]
  3. CIALIS [Suspect]
     Active Substance: TADALAFIL
     Indication: BENIGN PROSTATIC HYPERPLASIA
     Dosage: 20MG X 2 PER WEEK OR 5MG DAILY
     Route: 048
  4. VIAGRA [Concomitant]
     Active Substance: SILDENAFIL CITRATE

REACTIONS (7)
  - Amnesia [None]
  - Epilepsy [None]
  - Food allergy [None]
  - Gastric disorder [None]
  - Gastritis [None]
  - Prostatomegaly [None]
  - Diarrhoea [None]
